FAERS Safety Report 22391508 (Version 1)
Quarter: 2023Q2

REPORT INFORMATION
  Report Type: Spontaneous
  Country: JP (occurrence: JP)
  Receive Date: 20230601
  Receipt Date: 20230601
  Transmission Date: 20230721
  Serious: Yes (Death, Hospitalization, Other)
  Sender: FDA-Public Use
  Company Number: JP-BAXTER-2023BAX017723

PATIENT
  Age: 90 Year
  Sex: Female

DRUGS (1)
  1. EXTRANEAL [Suspect]
     Active Substance: CALCIUM CHLORIDE\ICODEXTRIN\MAGNESIUM CHLORIDE\SODIUM CHLORIDE\SODIUM LACTATE
     Indication: Dialysis
     Dosage: 1500ML (DWELL TIME: ABOUT 12 HOURS PER DAY)
     Route: 033
     Dates: start: 20230110, end: 20230405

REACTIONS (4)
  - Cardiopulmonary failure [Fatal]
  - Hypotension [Fatal]
  - Heart rate decreased [Fatal]
  - Hypothermia [Fatal]

NARRATIVE: CASE EVENT DATE: 20230330
